FAERS Safety Report 6655627-3 (Version None)
Quarter: 2010Q1

REPORT INFORMATION
  Report Type: 
  Country: None (occurrence: None)
  Receive Date: 20100329
  Receipt Date: 20100319
  Transmission Date: 20100710
  Serious: Yes (Other)
  Sender: FDA-Public Use
  Company Number: JP-PFIZER INC-2010036513

PATIENT
  Age: 90 Year
  Sex: Male

DRUGS (1)
  1. AMLODIPINE BESYLATE [Suspect]

REACTIONS (1)
  - INCISION SITE ABSCESS [None]
